FAERS Safety Report 9296756 (Version 1)
Quarter: 2013Q2

REPORT INFORMATION
  Report Type: Spontaneous
  Country: US (occurrence: US)
  Receive Date: 20130517
  Receipt Date: 20130517
  Transmission Date: 20140414
  Serious: Yes (Other)
  Sender: FDA-Public Use
  Company Number: US-ALLERGAN-1305346US

PATIENT
  Age: 59 Year
  Sex: Female

DRUGS (1)
  1. LUMIGAN? 0.01% [Suspect]
     Indication: OCULAR HYPERTENSION
     Dosage: UNK, QHS
     Route: 047
     Dates: start: 20120517, end: 20120518

REACTIONS (3)
  - Intraocular pressure increased [Recovered/Resolved]
  - Pain [Unknown]
  - Drug ineffective [Unknown]
